FAERS Safety Report 8224050-2 (Version None)
Quarter: 2012Q1

REPORT INFORMATION
  Report Type: 
  Country: None (occurrence: None)
  Receive Date: 20120321
  Receipt Date: 20120316
  Transmission Date: 20120608
  Serious: Yes (Other)
  Sender: FDA-Public Use
  Company Number: PHHY2012CA021085

PATIENT
  Sex: Male

DRUGS (6)
  1. ECT (ELECTRO CONVULSIVE THERAPY) [Concomitant]
     Dosage: UNK UKN, UNK
  2. MULTI-VITAMINS [Concomitant]
     Dosage: UNK UKN, UNK
  3. THEOPHYLLINE [Concomitant]
     Dosage: UNK UKN, UNK
  4. CLOZARIL [Suspect]
     Indication: SCHIZOPHRENIA
     Dosage: 350 MG, QHS
     Route: 048
     Dates: start: 20120306
  5. PROZAC [Suspect]
     Dosage: 30 MG, UNK
  6. CLOZARIL [Suspect]
     Indication: CATATONIA
     Dosage: 500 MG, UNK
     Route: 048
     Dates: start: 20030618, end: 20120306

REACTIONS (10)
  - DEPRESSED LEVEL OF CONSCIOUSNESS [None]
  - DRUG INTERACTION [None]
  - RETCHING [None]
  - MYOCLONUS [None]
  - HYPOTENSION [None]
  - SEDATION [None]
  - LOBAR PNEUMONIA [None]
  - RESPIRATORY DISTRESS [None]
  - ANTIPSYCHOTIC DRUG LEVEL INCREASED [None]
  - COUGH [None]
